FAERS Safety Report 15274945 (Version 2)
Quarter: 2018Q4

REPORT INFORMATION
  Report Type: Spontaneous
  Country: US (occurrence: US)
  Receive Date: 20180814
  Receipt Date: 20181015
  Transmission Date: 20190204
  Serious: No
  Sender: FDA-Public Use
  Company Number: US-JNJFOC-20180717084

PATIENT
  Sex: Female

DRUGS (2)
  1. TYLENOL REGULAR STRENGTH [Suspect]
     Active Substance: ACETAMINOPHEN
     Indication: PAIN
     Route: 048
     Dates: end: 20180711
  2. ADVIL [Concomitant]
     Active Substance: IBUPROFEN
     Indication: PAIN
     Route: 065

REACTIONS (2)
  - Choking sensation [Recovered/Resolved]
  - Retching [Recovered/Resolved]
